FAERS Safety Report 5411331-0 (Version None)
Quarter: 2007Q3

REPORT INFORMATION
  Report Type: 
  Country: None (occurrence: None)
  Receive Date: 20070810
  Receipt Date: 20070731
  Transmission Date: 20080115
  Serious: Yes (Death, Other)
  Sender: FDA-Public Use
  Company Number: US-ROCHE-509556

PATIENT
  Age: 70 Year
  Sex: Female

DRUGS (2)
  1. XELODA [Suspect]
     Indication: RECTAL CANCER
     Dosage: THE PATIENT HAD LESS THAN 1 WEEK OF XELODA THERAPY.
     Route: 048
  2. OXALIPLATIN [Suspect]
     Indication: RECTAL CANCER
     Dosage: THE PATIENT HAD 1 DOSE OF OXALIPLATIN.
     Route: 065

REACTIONS (2)
  - DEATH [None]
  - THROMBOSIS MESENTERIC VESSEL [None]
